FAERS Safety Report 9528264 (Version 1)
Quarter: 2013Q3

REPORT INFORMATION
  Report Type: Spontaneous
  Country: FR (occurrence: FR)
  Receive Date: 20130917
  Receipt Date: 20130917
  Transmission Date: 20140515
  Serious: Yes (Hospitalization)
  Sender: FDA-Public Use
  Company Number: PHHY2013FR101125

PATIENT
  Age: 84 Year
  Sex: Female
  Weight: 54 kg

DRUGS (23)
  1. ACLASTA [Suspect]
     Dosage: 5 MG, ONE TIME ONLY
     Route: 042
     Dates: start: 20100520
  2. PREVISCAN [Suspect]
     Indication: ARRHYTHMIA
     Dosage: 1 IN 1 DAY
     Route: 048
     Dates: end: 201005
  3. PREVISCAN [Suspect]
     Indication: DEEP VEIN THROMBOSIS
  4. PYOSTACINE [Concomitant]
     Dosage: 2 DF, 2 IN 1 DAY
     Route: 048
     Dates: start: 20100503, end: 201005
  5. SKENAN [Concomitant]
     Indication: PAIN
     Dosage: UNK UKN, UNK
     Route: 048
     Dates: start: 201005, end: 201005
  6. ACTISKENAN [Concomitant]
     Indication: PAIN
     Route: 048
  7. PARACETAMOL [Concomitant]
     Indication: PAIN
     Dosage: UNK UKN, UNK
     Route: 048
     Dates: start: 201005
  8. UVEDOSE [Concomitant]
     Dosage: ONE DOSE
     Route: 048
     Dates: start: 20100520
  9. OROCAL D3 [Concomitant]
     Dosage: UNK UKN, UNK
     Dates: start: 20100520
  10. ACTONEL [Concomitant]
     Dosage: ONCE IN A WEEK
     Route: 048
     Dates: end: 201006
  11. AMIODARONE [Concomitant]
     Dosage: 200 MG, 1 IN 1 DAY
     Route: 048
  12. PAROXETINE [Concomitant]
     Dosage: 20 MG, QD
     Route: 048
  13. TOPALGIC ^HOUDE^ [Concomitant]
     Dosage: 2 IN 1 DAY
     Route: 048
     Dates: start: 201005
  14. DIFFU-K [Concomitant]
  15. LERCAN [Concomitant]
     Dosage: 20 MG, UNK
  16. RHINOCORT (BECLOMETASONE DIPROPIONATE) [Concomitant]
  17. SERETIDE [Concomitant]
     Dosage: 500 (1X2)
  18. FLIXOTIDE [Concomitant]
     Dosage: 500 (1X2)
  19. SPIRIVA [Concomitant]
  20. HYDROCORTISONE [Concomitant]
     Indication: BRONCHITIS
     Dosage: 10 MG, 2-1-0
  21. HYDROCORTISONE [Concomitant]
     Dosage: 60 MG, UNK
  22. SINGULAIR [Concomitant]
     Dosage: 10
  23. TRANXENE [Concomitant]
     Dosage: 5 MG, UNK

REACTIONS (2)
  - Haematoma [Recovered/Resolved]
  - Haemoglobin decreased [Recovered/Resolved]
